FAERS Safety Report 7966473-2 (Version None)
Quarter: 2011Q4

REPORT INFORMATION
  Report Type: 
  Country: None (occurrence: None)
  Receive Date: 20111208
  Receipt Date: 20111129
  Transmission Date: 20120403
  Serious: Yes (Hospitalization, Other)
  Sender: FDA-Public Use
  Company Number: US-ASTRAZENECA-2011SE51762

PATIENT
  Age: 61 Year
  Sex: Female
  Weight: 80.3 kg

DRUGS (9)
  1. NEXIUM [Suspect]
     Route: 048
  2. NEURONTIN [Concomitant]
  3. SYMBYAX [Concomitant]
     Dosage: 6/25 MG, BED TIE
  4. CHANTIX [Concomitant]
     Dosage: 1 MG ON AND OFF
  5. ANUCORT SUPPOSITORY [Concomitant]
     Indication: RECTAL HAEMORRHAGE
  6. PREVACID [Concomitant]
     Dosage: UNKNOWN DOSE TWICE DAILY
  7. VICODIN [Concomitant]
  8. TAMOXIFEN [Concomitant]
     Indication: BREAST CANCER
     Route: 048
     Dates: start: 20000601, end: 20050601
  9. CELEBREX [Concomitant]

REACTIONS (14)
  - BARRETT'S OESOPHAGUS [None]
  - ARRHYTHMIA [None]
  - HIATUS HERNIA [None]
  - CARDIAC PROCEDURE COMPLICATION [None]
  - PHARYNGEAL POLYP [None]
  - ARTHRITIS [None]
  - PAIN [None]
  - ASTHMA [None]
  - GASTROOESOPHAGEAL REFLUX DISEASE [None]
  - DYSPHONIA [None]
  - INTERVERTEBRAL DISC PROTRUSION [None]
  - VOCAL CORD POLYP [None]
  - BACK PAIN [None]
  - MOBILITY DECREASED [None]
